FAERS Safety Report 19350185 (Version 1)
Quarter: 2021Q2

REPORT INFORMATION
  Report Type: Spontaneous
  Country: US (occurrence: US)
  Receive Date: 20210601
  Receipt Date: 20210601
  Transmission Date: 20210717
  Serious: Yes (Hospitalization)
  Sender: FDA-Public Use
  Company Number: None

PATIENT
  Age: 68 Year
  Sex: Male
  Weight: 70 kg

DRUGS (2)
  1. APIXABAN [Suspect]
     Active Substance: APIXABAN
     Indication: ATRIAL FIBRILLATION
     Route: 048
     Dates: start: 20200828, end: 20200910
  2. ASPIRIN 81 MG [Suspect]
     Active Substance: ASPIRIN
     Indication: VASCULAR DEVICE USER
     Route: 048
     Dates: start: 20200828

REACTIONS (1)
  - Pulmonary haemorrhage [None]

NARRATIVE: CASE EVENT DATE: 20200910
